FAERS Safety Report 9450623 (Version 1)
Quarter: 2013Q3

REPORT INFORMATION
  Report Type: Report from Study
  Country: US (occurrence: US)
  Receive Date: 20130809
  Receipt Date: 20130809
  Transmission Date: 20140515
  Serious: Yes (Death, Hospitalization)
  Sender: FDA-Public Use
  Company Number: US-ACTELION-A-NJ2011-52303

PATIENT
  Age: 63 Year
  Sex: Male

DRUGS (2)
  1. TRACLEER [Suspect]
     Indication: PULMONARY ARTERIAL HYPERTENSION
     Dosage: UNK
     Route: 048
     Dates: start: 20110114, end: 20130730
  2. REVATIO [Concomitant]

REACTIONS (4)
  - Death [Fatal]
  - Pneumonia [Unknown]
  - Depression [Unknown]
  - Asthenia [Unknown]
